FAERS Safety Report 9518665 (Version 1)
Quarter: 2013Q3

REPORT INFORMATION
  Report Type: Report from Study
  Country: US (occurrence: US)
  Receive Date: 20130912
  Receipt Date: 20130912
  Transmission Date: 20140515
  Serious: Yes (Hospitalization)
  Sender: FDA-Public Use
  Company Number: PHEH2013US019010

PATIENT
  Sex: Female

DRUGS (2)
  1. TOBI [Suspect]
     Indication: CHRONIC OBSTRUCTIVE PULMONARY DISEASE
     Dosage: 300 MG, BID
     Dates: end: 201302
  2. PREDNISONE [Concomitant]
     Dosage: UNK UKN, UNK

REACTIONS (4)
  - Multiple fractures [Unknown]
  - Nerve injury [Unknown]
  - Neuropathy peripheral [Unknown]
  - Dyspnoea [Unknown]
